FAERS Safety Report 10833516 (Version 1)
Quarter: 2015Q1

REPORT INFORMATION
  Report Type: Spontaneous
  Country: CA (occurrence: CA)
  Receive Date: 20150219
  Receipt Date: 20150219
  Transmission Date: 20150721
  Serious: Yes (Other)
  Sender: FDA-Public Use
  Company Number: CA-BAYER-2015-024715

PATIENT
  Age: 54 Year
  Sex: Male

DRUGS (2)
  1. ASPIRIN. [Suspect]
     Active Substance: ASPIRIN
     Dosage: 400 MG, QD
     Route: 048
     Dates: end: 2005
  2. ASPIRIN. [Suspect]
     Active Substance: ASPIRIN
     Dosage: 81 MG, QD
     Dates: start: 2005

REACTIONS (2)
  - Intestinal haemorrhage [Recovered/Resolved]
  - Colon injury [Recovered/Resolved]

NARRATIVE: CASE EVENT DATE: 2005
